FAERS Safety Report 8891768 (Version 1)
Quarter: 2012Q4

REPORT INFORMATION
  Report Type: 
  Country: US (occurrence: US)
  Receive Date: 20121107
  Receipt Date: 20121107
  Transmission Date: 20130627
  Serious: No
  Sender: FDA-Public Use
  Company Number: US-AMGEN-USASP2011058463

PATIENT
  Age: 62 Year
  Sex: Female

DRUGS (2)
  1. ENBREL [Suspect]
     Indication: PSORIASIS
     Dosage: 50 mg, qwk
     Dates: start: 20050601
  2. RAPTIVA [Concomitant]
     Dosage: UNK
     Dates: start: 200606, end: 200701

REACTIONS (3)
  - Headache [Not Recovered/Not Resolved]
  - Sinusitis [Recovered/Resolved]
  - Eye infection [Recovered/Resolved]
